FAERS Safety Report 6073676-3 (Version None)
Quarter: 2009Q1

REPORT INFORMATION
  Report Type: 
  Country: None (occurrence: None)
  Receive Date: 20090211
  Receipt Date: 20081226
  Transmission Date: 20090719
  Serious: Yes (Hospitalization, Other)
  Sender: FDA-Public Use
  Company Number: US-PFIZER INC-2008073730

PATIENT
  Sex: Male

DRUGS (3)
  1. NEURONTIN [Suspect]
     Indication: NEUROPATHY PERIPHERAL
     Route: 048
  2. FLEXERIL [Suspect]
     Dates: start: 20080101, end: 20080101
  3. AMITRIPTYLINE HCL [Suspect]
     Indication: NEUROPATHY PERIPHERAL
     Route: 048
     Dates: start: 20080801

REACTIONS (11)
  - DEPRESSION [None]
  - EMOTIONAL DISORDER [None]
  - FALL [None]
  - LOSS OF CONSCIOUSNESS [None]
  - NEOPLASM SKIN [None]
  - NEUROPATHY PERIPHERAL [None]
  - OVERDOSE [None]
  - PAIN [None]
  - SELF-INJURIOUS IDEATION [None]
  - SKIN LACERATION [None]
  - TUNNEL VISION [None]
